FAERS Safety Report 21799628 (Version 1)
Quarter: 2022Q4

REPORT INFORMATION
  Report Type: Spontaneous
  Country: US (occurrence: None)
  Receive Date: 20221229
  Receipt Date: 20221229
  Transmission Date: 20230113
  Serious: No
  Sender: FDA-Public Use
  Company Number: None

PATIENT
  Age: 67 Year
  Sex: Female
  Weight: 111.58 kg

DRUGS (17)
  1. VERZENIO [Suspect]
     Active Substance: ABEMACICLIB
     Indication: Breast cancer female
     Dosage: FREQUENCY : TWICE A DAY;?
     Route: 048
     Dates: start: 202206
  2. ARIMIDEX [Concomitant]
  3. ATORVASTATIN [Concomitant]
  4. BUPROPION [Concomitant]
  5. CELECOXIB [Concomitant]
  6. CLOTRIMAZOLE-BETAMETHASONE [Concomitant]
  7. COMBIGAN [Concomitant]
  8. IBUPROFEN [Concomitant]
  9. IMODIUM AD [Concomitant]
  10. LISINOPRIL-HYDROCHLOROTHIAZIDE [Concomitant]
  11. LUMIGAN [Concomitant]
  12. METFORMIN [Concomitant]
  13. NASONEX [Concomitant]
  14. OZEMPIC [Concomitant]
  15. MAGNESIUM [Concomitant]
  16. VITAMIN B12 [Concomitant]
  17. VITAMIN D [Concomitant]

REACTIONS (2)
  - Renal disorder [None]
  - Therapy interrupted [None]
